FAERS Safety Report 16823558 (Version 1)
Quarter: 2019Q3

REPORT INFORMATION
  Report Type: Spontaneous
  Country: TR (occurrence: TR)
  Receive Date: 20190918
  Receipt Date: 20190918
  Transmission Date: 20191005
  Serious: Yes (Death, Other)
  Sender: FDA-Public Use
  Company Number: TR-GILEAD-2019-0428739

PATIENT

DRUGS (2)
  1. CALCIUM [Concomitant]
     Active Substance: CALCIUM
  2. VIREAD [Suspect]
     Active Substance: TENOFOVIR DISOPROXIL FUMARATE
     Indication: HEPATITIS B
     Dosage: UNK
     Route: 064

REACTIONS (2)
  - Foetal heart rate abnormal [Fatal]
  - Foetal exposure during pregnancy [Unknown]
